FAERS Safety Report 8133601-8 (Version None)
Quarter: 2012Q1

REPORT INFORMATION
  Report Type: 
  Country: None (occurrence: None)
  Receive Date: 20120213
  Receipt Date: 20120203
  Transmission Date: 20120608
  Serious: Yes (Death, Hospitalization, Other)
  Sender: FDA-Public Use
  Company Number: ES-ABBOTT-12P-144-0891594-00

PATIENT
  Sex: Female
  Weight: 118 kg

DRUGS (12)
  1. OMEPRAZOLE [Concomitant]
     Indication: PRODUCT USED FOR UNKNOWN INDICATION
     Route: 048
  2. METFORMIN HCL [Concomitant]
     Indication: TYPE 2 DIABETES MELLITUS
     Route: 048
  3. VALSARTAN [Concomitant]
     Indication: PRODUCT USED FOR UNKNOWN INDICATION
  4. ATORVASTATIN CALCIUM [Concomitant]
     Indication: PRODUCT USED FOR UNKNOWN INDICATION
  5. ACETAMINOPHEN [Concomitant]
     Indication: PAIN
  6. LEVOTHYROXINE SODIUM [Concomitant]
     Indication: HYPOTHYROIDISM
     Route: 048
  7. HUMIRA [Suspect]
     Route: 058
     Dates: start: 20110519, end: 20120101
  8. LEVOTHYROXINE SODIUM [Concomitant]
     Indication: PRODUCT USED FOR UNKNOWN INDICATION
  9. VALSARTAN [Concomitant]
     Indication: HYPERTENSION
     Route: 048
  10. RILAST FORTE [Concomitant]
     Indication: PRODUCT USED FOR UNKNOWN INDICATION
     Dosage: 1 INHALATION AT BREAKFAST AND AT DINNER
     Route: 055
  11. HUMIRA [Suspect]
     Indication: PSORIASIS
     Route: 058
     Dates: start: 20110504, end: 20110504
  12. HUMIRA [Suspect]
     Route: 058
     Dates: start: 20110511, end: 20110511

REACTIONS (22)
  - METASTASES TO LUNG [None]
  - THIRST [None]
  - URINARY TRACT INFECTION [None]
  - BACK PAIN [None]
  - MESENTERIC LYMPHADENOPATHY [None]
  - FAECES DISCOLOURED [None]
  - PSYCHOMOTOR HYPERACTIVITY [None]
  - ABDOMINAL PAIN [None]
  - RESPIRATORY TRACT INFECTION [None]
  - ESCHERICHIA URINARY TRACT INFECTION [None]
  - HYPERCALCAEMIA OF MALIGNANCY [None]
  - DIARRHOEA [None]
  - SEPSIS [None]
  - TRANSITIONAL CELL CARCINOMA [None]
  - ARTHRALGIA [None]
  - METASTASES TO BONE [None]
  - ABDOMINAL DISCOMFORT [None]
  - CONDITION AGGRAVATED [None]
  - TUMOUR LYSIS SYNDROME [None]
  - LEUKOERYTHROBLASTIC ANAEMIA [None]
  - SPLENOMEGALY [None]
  - RENAL FAILURE ACUTE [None]
